FAERS Safety Report 24803301 (Version 2)
Quarter: 2025Q1

REPORT INFORMATION
  Report Type: Spontaneous
  Country: KR (occurrence: KR)
  Receive Date: 20250103
  Receipt Date: 20250325
  Transmission Date: 20250409
  Serious: Yes (Hospitalization)
  Sender: SAMSUNG BIOEPIS
  Company Number: KR-SAMSUNG BIOEPIS-SB-2024-39804

PATIENT
  Age: 71 Year
  Sex: Male
  Weight: 54.4 kg

DRUGS (20)
  1. TRASTUZUMAB [Suspect]
     Active Substance: TRASTUZUMAB
     Indication: Gallbladder cancer
     Route: 042
     Dates: start: 20241203
  2. NIVOLUMAB [Suspect]
     Active Substance: NIVOLUMAB
     Indication: Gallbladder cancer
     Route: 042
     Dates: start: 20241203
  3. GEMCITABINE [Suspect]
     Active Substance: GEMCITABINE
     Indication: Gallbladder cancer
     Route: 042
     Dates: start: 20241203
  4. CISPLATIN [Suspect]
     Active Substance: CISPLATIN
     Indication: Gallbladder cancer
     Route: 042
     Dates: start: 20241203
  5. EZETIMIBE\ROSUVASTATIN [Concomitant]
     Active Substance: EZETIMIBE\ROSUVASTATIN
     Indication: Product used for unknown indication
     Dosage: TABLET 10/10MG;
     Dates: start: 20241203
  6. Vastinan MR [Concomitant]
     Indication: Product used for unknown indication
     Dates: start: 20241203
  7. OXYCODONE HYDROCHLORIDE [Concomitant]
     Active Substance: OXYCODONE HYDROCHLORIDE
     Indication: Prophylaxis
     Dates: start: 20241203
  8. Dulackhan easy [Concomitant]
     Indication: Product used for unknown indication
     Dates: start: 20241112
  9. Dulackhan easy [Concomitant]
     Dates: start: 20241220
  10. XARELTO [Concomitant]
     Active Substance: RIVAROXABAN
     Indication: Product used for unknown indication
     Dates: start: 20241127
  11. GLICLAZIDE [Concomitant]
     Active Substance: GLICLAZIDE
     Indication: Product used for unknown indication
     Dates: start: 20241127
  12. JANUVIA [Concomitant]
     Active Substance: SITAGLIPTIN PHOSPHATE
     Indication: Product used for unknown indication
     Dates: start: 20241113
  13. Movizolo [Concomitant]
     Indication: Prophylaxis
     Dates: start: 20241113
  14. Fexuclue [Concomitant]
     Indication: Prophylaxis
     Dates: start: 20241113
  15. URUSA [Concomitant]
     Active Substance: URSODIOL
     Indication: Prophylaxis
     Dates: start: 20241113
  16. MEGACE F [Concomitant]
     Indication: Product used for unknown indication
     Dates: start: 20241113
  17. Zemimet SR [Concomitant]
     Indication: Product used for unknown indication
     Dosage: TAB. 50/500 MG;
     Dates: start: 20241211
  18. RYZODEG 70/30 [Concomitant]
     Active Substance: INSULIN ASPART\INSULIN DEGLUDEC
     Indication: Product used for unknown indication
     Dosage: FLEX TOUCH INJ. 100 I.U/ML;
     Dates: start: 20241211
  19. Dong-a Suprax [Concomitant]
     Indication: Product used for unknown indication
     Dosage: CAPSULE;
     Dates: start: 20241203
  20. Dong-a Suprax [Concomitant]
     Dosage: CAPSULE;
     Dates: start: 20241223

REACTIONS (2)
  - Diarrhoea [Recovered/Resolved]
  - Off label use [Unknown]

NARRATIVE: CASE EVENT DATE: 20241214
